FAERS Safety Report 8415232-5 (Version None)
Quarter: 2012Q2

REPORT INFORMATION
  Report Type: 
  Country: None (occurrence: None)
  Receive Date: 20120530
  Receipt Date: 20120514
  Transmission Date: 20120825
  Serious: Yes (Other)
  Sender: FDA-Public Use
  Company Number: 20120306

PATIENT
  Age: 68 Year
  Sex: Female

DRUGS (9)
  1. LISINOPRIL [Concomitant]
  2. VENOFER [Suspect]
     Indication: IRON DEFICIENCY ANAEMIA
     Dosage: 200 MG IV PUSH
     Route: 042
     Dates: start: 20120507, end: 20120507
  3. XANAX [Concomitant]
  4. METOPROLOL TARTRATE [Concomitant]
  5. NORVASC [Concomitant]
  6. PLAVIX [Concomitant]
  7. VENOFER [Suspect]
     Dosage: INTRAVENOUS BOLUS
     Route: 040
  8. OMEPRAZOLE [Concomitant]
  9. VICODIN [Concomitant]

REACTIONS (9)
  - DIZZINESS [None]
  - NAUSEA [None]
  - BLOOD GLUCOSE INCREASED [None]
  - INFUSION RELATED REACTION [None]
  - CHEST DISCOMFORT [None]
  - ASTHENIA [None]
  - HYPERHIDROSIS [None]
  - HOT FLUSH [None]
  - BURNING SENSATION [None]
